FAERS Safety Report 12993844 (Version 1)
Quarter: 2016Q4

REPORT INFORMATION
  Report Type: Spontaneous
  Country: US (occurrence: US)
  Receive Date: 20161201
  Receipt Date: 20161201
  Transmission Date: 20170207
  Serious: Yes (Hospitalization)
  Sender: FDA-Public Use
  Company Number: None

PATIENT
  Age: 84 Year
  Sex: Male
  Weight: 73.09 kg

DRUGS (1)
  1. CABOZANTINIB [Suspect]
     Active Substance: CABOZANTINIB
     Indication: PAPILLARY THYROID CANCER
     Route: 048
     Dates: start: 20160511, end: 20161122

REACTIONS (2)
  - Weight decreased [None]
  - Acute myocardial infarction [None]

NARRATIVE: CASE EVENT DATE: 20161201
